FAERS Safety Report 16872524 (Version 1)
Quarter: 2019Q4

REPORT INFORMATION
  Report Type: Spontaneous
  Country: US (occurrence: US)
  Receive Date: 20191001
  Receipt Date: 20191001
  Transmission Date: 20200122
  Serious: No
  Sender: FDA-Public Use
  Company Number: US-ASTRAZENECA-2019SF26771

PATIENT

DRUGS (1)
  1. SYMBICORT [Suspect]
     Active Substance: BUDESONIDE\FORMOTEROL FUMARATE DIHYDRATE
     Indication: ASTHMA
     Dosage: 160/4.5 MCG 120 INHALATIONS UNKNOWN UNKNOWN
     Route: 055
     Dates: start: 201901

REACTIONS (4)
  - Muscle spasms [Unknown]
  - Vulvovaginal mycotic infection [Unknown]
  - Urticaria [Unknown]
  - Wrong technique in product usage process [Unknown]
